FAERS Safety Report 7181846 (Version 2)
Quarter: 2013Q3

REPORT INFORMATION
  Report Type: Spontaneous
  Country: None (occurrence: None)
  Receive Date: 20091104
  Receipt Date: 20130710
  Transmission Date: 20140515
  Serious: Yes (Hospitalization, Other)
  Sender: FDA-Public Use
  Company Number: AUR-APL-2009-00980

PATIENT
  Age: 64 Year
  Sex: Female

DRUGS (2)
  1. PAROXETINE (PAROXETINE) [Suspect]
     Indication: ANXIETY
  2. FENTANYL [Suspect]
     Indication: PAIN

REACTIONS (2)
  - Serotonin syndrome [None]
  - Drug interaction [None]
